FAERS Safety Report 9168554 (Version 1)
Quarter: 2013Q1

REPORT INFORMATION
  Report Type: Spontaneous
  Country: JP (occurrence: JP)
  Receive Date: 20130318
  Receipt Date: 20130318
  Transmission Date: 20140127
  Serious: Yes (Other)
  Sender: FDA-Public Use
  Company Number: JP-BAYER-2013-013737

PATIENT
  Age: 78 Year
  Sex: Male
  Weight: 66 kg

DRUGS (12)
  1. NEXAVAR [Suspect]
     Indication: HEPATOCELLULAR CARCINOMA
     Dosage: DAILY DOSE 200 MG
     Route: 048
     Dates: start: 20130123, end: 20130126
  2. EUGLUCON [Concomitant]
     Indication: DIABETES MELLITUS
     Dosage: DAILY DOSE 2.5 MG
     Route: 048
     Dates: start: 20121122
  3. VILDAGLIPTIN [Concomitant]
     Indication: DIABETES MELLITUS
     Dosage: DAILY DOSE 100 MG
     Route: 048
     Dates: start: 20121122
  4. DIOVAN [Concomitant]
     Indication: HYPERTENSION
     Dosage: DAILY DOSE 40 MG
     Route: 048
     Dates: start: 20121122
  5. NORVASC [Concomitant]
     Indication: HYPERTENSION
     Dosage: DAILY DOSE 5 MG
     Route: 048
     Dates: start: 20121122
  6. AMINOLEBAN [Concomitant]
     Indication: HEPATIC FAILURE
     Dosage: DAILY DOSE 100 G
     Route: 048
     Dates: start: 20121129
  7. LASIX [Concomitant]
     Indication: HEPATIC FAILURE
     Dosage: DAILY DOSE 40 MG
     Route: 048
     Dates: start: 20121206
  8. LASIX [Concomitant]
     Indication: HEPATIC FAILURE
     Dosage: DAILY DOSE 40 MG
     Route: 042
     Dates: start: 20130126
  9. GASTER [Concomitant]
     Indication: HEPATIC FAILURE
     Dosage: DAILY DOSE 40 MG
     Route: 048
     Dates: start: 20121206
  10. NAIXAN [Concomitant]
     Indication: PYREXIA
     Dosage: DAILY DOSE 200 MG
     Route: 048
     Dates: start: 20121206
  11. ALDACTONE A [Concomitant]
     Dosage: DAILY DOSE 25 MG
     Route: 048
     Dates: start: 20130119
  12. BIO-THREE [Concomitant]
     Dosage: DAILY DOSE 3 DF
     Route: 048
     Dates: start: 20130119

REACTIONS (2)
  - Hepatic function abnormal [Recovering/Resolving]
  - Hyperkalaemia [Recovering/Resolving]
